FAERS Safety Report 18308517 (Version 4)
Quarter: 2020Q4

REPORT INFORMATION
  Report Type: Report from Study
  Country: US (occurrence: US)
  Receive Date: 20200924
  Receipt Date: 20201218
  Transmission Date: 20210113
  Serious: No
  Sender: FDA-Public Use
  Company Number: NVSC2020US257285

PATIENT
  Sex: Female

DRUGS (3)
  1. COSENTYX [Suspect]
     Active Substance: SECUKINUMAB
     Indication: PSORIASIS
     Dosage: 300 MG, OTHER (ONCE WEEKLY FOR 5 WEEKS, THEN ONCE EVERY 28 DAYS)
     Route: 058
     Dates: start: 20200824
  2. COSENTYX [Suspect]
     Active Substance: SECUKINUMAB
     Indication: PSORIATIC ARTHROPATHY
  3. PREDNISONE. [Concomitant]
     Active Substance: PREDNISONE
     Indication: PRODUCT USED FOR UNKNOWN INDICATION
     Dosage: UNK (TAKING OFF AND ON)
     Route: 065
     Dates: start: 20200520

REACTIONS (3)
  - Injection site bruising [Unknown]
  - Psoriasis [Unknown]
  - Cyst [Unknown]
